FAERS Safety Report 15434718 (Version 1)
Quarter: 2018Q3

REPORT INFORMATION
  Report Type: Spontaneous
  Country: PL (occurrence: PL)
  Receive Date: 20180927
  Receipt Date: 20180927
  Transmission Date: 20181010
  Serious: Yes (Hospitalization, Other)
  Sender: FDA-Public Use
  Company Number: PHHY2018PL094376

PATIENT
  Age: 14 Year
  Sex: Female

DRUGS (9)
  1. HYDROCHLOROTHIAZIDE. [Suspect]
     Active Substance: HYDROCHLOROTHIAZIDE
     Indication: HYPERCALCAEMIA
  2. CALCIUM CARBONATE. [Suspect]
     Active Substance: CALCIUM CARBONATE
     Indication: SUPPLEMENTATION THERAPY
     Dosage: 4 G, UNK
     Route: 065
  3. 1?ALPHA?HYDROXYCHOLECALCIFEROL [Suspect]
     Active Substance: ALFACALCIDOL
     Indication: PRIMARY HYPOTHYROIDISM
     Dosage: 1.75 UG, UNK
     Route: 065
  4. HYDROCHLOROTHIAZIDE. [Suspect]
     Active Substance: HYDROCHLOROTHIAZIDE
     Indication: NEPHROCALCINOSIS
     Dosage: 12.5 MG, QD
     Route: 065
  5. HYDROCHLOROTHIAZIDE. [Suspect]
     Active Substance: HYDROCHLOROTHIAZIDE
     Indication: HYPERCALCIURIA
     Dosage: 25 MG, QD
     Route: 065
  6. CALCIUM CARBONATE. [Suspect]
     Active Substance: CALCIUM CARBONATE
     Dosage: 3 G, UNK
     Route: 065
  7. 1?ALPHA?HYDROXYCHOLECALCIFEROL [Suspect]
     Active Substance: ALFACALCIDOL
     Dosage: 1 UG, QD
     Route: 065
  8. MAGNESIUM CITRATE. [Concomitant]
     Active Substance: MAGNESIUM CITRATE
     Indication: PRODUCT USED FOR UNKNOWN INDICATION
     Dosage: UNK
     Route: 065
  9. 1?ALPHA?HYDROXYCHOLECALCIFEROL [Suspect]
     Active Substance: ALFACALCIDOL
     Dosage: 1.25 UG, UNK
     Route: 065

REACTIONS (10)
  - Hypercalciuria [Recovered/Resolved]
  - Polydipsia [Recovered/Resolved]
  - Hypokalaemia [Recovering/Resolving]
  - Tachycardia [Recovered/Resolved]
  - Hypercalcaemia [Recovered/Resolved]
  - Nephrocalcinosis [Recovering/Resolving]
  - Nausea [Recovered/Resolved]
  - Oral candidiasis [Unknown]
  - Dyspnoea [Recovered/Resolved]
  - Asthenia [Recovered/Resolved]

NARRATIVE: CASE EVENT DATE: 201501
